FAERS Safety Report 7085454-7 (Version None)
Quarter: 2010Q4

REPORT INFORMATION
  Report Type: 
  Country: None (occurrence: None)
  Receive Date: 20101105
  Receipt Date: 20101103
  Transmission Date: 20110411
  Serious: Yes (Hospitalization, Other)
  Sender: FDA-Public Use
  Company Number: US-PFIZER INC-2010140295

PATIENT
  Sex: Female
  Weight: 62.132 kg

DRUGS (4)
  1. NICOTROL [Suspect]
     Indication: SMOKING CESSATION THERAPY
     Dosage: UNK
     Dates: start: 20080825, end: 20080101
  2. METFORMIN [Concomitant]
     Indication: TYPE 2 DIABETES MELLITUS
     Dosage: 500 MG, 2X/DAY
     Route: 048
     Dates: end: 20100101
  3. CRESTOR [Concomitant]
     Indication: BLOOD CHOLESTEROL ABNORMAL
     Dosage: 10 MG, 1X/DAY
     Route: 048
     Dates: end: 20100101
  4. COZAAR [Concomitant]
     Indication: HYPERTENSION
     Dosage: 100 MG, 1X/DAY
     Route: 048
     Dates: end: 20100101

REACTIONS (6)
  - BLOOD POTASSIUM DECREASED [None]
  - CONVULSION [None]
  - FRONTAL LOBE EPILEPSY [None]
  - TEMPORAL LOBE EPILEPSY [None]
  - WEIGHT DECREASED [None]
  - WEIGHT FLUCTUATION [None]
